FAERS Safety Report 6620382-X (Version None)
Quarter: 2010Q1

REPORT INFORMATION
  Report Type: 
  Country: None (occurrence: None)
  Receive Date: 20100308
  Receipt Date: 20100308
  Transmission Date: 20100710
  Serious: No
  Sender: FDA-Public Use
  Company Number: None

PATIENT
  Sex: Female
  Weight: 90 kg

DRUGS (1)
  1. TAXOTERE [Suspect]
     Dosage: 250 MG
     Dates: end: 20090824

REACTIONS (12)
  - ANXIETY [None]
  - CHEST PAIN [None]
  - DIARRHOEA [None]
  - DYSKINESIA [None]
  - DYSPNOEA [None]
  - HEADACHE [None]
  - HYPERKALAEMIA [None]
  - HYPERVENTILATION [None]
  - NAUSEA [None]
  - OXYGEN SATURATION DECREASED [None]
  - PAIN [None]
  - SCREAMING [None]
